FAERS Safety Report 16592144 (Version 8)
Quarter: 2019Q4

REPORT INFORMATION
  Report Type: Report from Study
  Country: US (occurrence: US)
  Receive Date: 20190718
  Receipt Date: 20191204
  Transmission Date: 20200122
  Serious: Yes (Other)
  Sender: FDA-Public Use
  Company Number: US-TESAROUBC-2019-TSO02339-US

PATIENT
  Age: 78 Year
  Sex: Female

DRUGS (7)
  1. XANAX [Concomitant]
     Active Substance: ALPRAZOLAM
     Dosage: UNK, 3X A WEEK
  2. NIRAPARIB [Suspect]
     Active Substance: NIRAPARIB
     Dosage: 200 MG, 9 AM WITHOUT FOOD
     Route: 048
     Dates: start: 20190304
  3. NIRAPARIB [Suspect]
     Active Substance: NIRAPARIB
     Dosage: 200 MG, QAM WITH FOOD
  4. NIRAPARIB [Suspect]
     Active Substance: NIRAPARIB
     Dosage: 200 MG AM WITH OR WITHOUT FOOD
     Route: 065
     Dates: start: 20191130
  5. XANAX [Concomitant]
     Active Substance: ALPRAZOLAM
     Indication: PRODUCT USED FOR UNKNOWN INDICATION
     Dosage: 1.5 DF, QD
     Route: 065
  6. NIRAPARIB [Suspect]
     Active Substance: NIRAPARIB
     Indication: OVARIAN CANCER STAGE IV
     Dosage: 200 MG, QD
     Route: 048
     Dates: start: 201902
  7. NIRAPARIB [Suspect]
     Active Substance: NIRAPARIB
     Dosage: 200 MG, Q AM WITH FOOD
     Dates: start: 20190702

REACTIONS (34)
  - Stress [Not Recovered/Not Resolved]
  - Rash vesicular [Unknown]
  - Alopecia [Not Recovered/Not Resolved]
  - Osteoporosis [Unknown]
  - Weight decreased [Recovering/Resolving]
  - Pruritus [Unknown]
  - Erythema [Unknown]
  - Productive cough [Unknown]
  - Fatigue [Not Recovered/Not Resolved]
  - Neuropathy peripheral [Not Recovered/Not Resolved]
  - Photosensitivity reaction [Not Recovered/Not Resolved]
  - Decreased appetite [Recovering/Resolving]
  - Feeling abnormal [Not Recovered/Not Resolved]
  - Crying [Unknown]
  - Varicose vein [Unknown]
  - Insomnia [Not Recovered/Not Resolved]
  - Asthenia [Recovered/Resolved]
  - Fall [Recovered/Resolved]
  - Blister [Unknown]
  - Fine motor skill dysfunction [Unknown]
  - Arthralgia [Recovered/Resolved]
  - Peripheral swelling [Unknown]
  - Mental impairment [Unknown]
  - Balance disorder [Recovering/Resolving]
  - Nausea [Recovered/Resolved]
  - Mental disorder [Not Recovered/Not Resolved]
  - Pain in extremity [Not Recovered/Not Resolved]
  - Depression [Recovering/Resolving]
  - Cough [Not Recovered/Not Resolved]
  - Acrochordon [Recovering/Resolving]
  - Abdominal distension [Recovering/Resolving]
  - Abdominal pain [Not Recovered/Not Resolved]
  - Constipation [Recovered/Resolved]
  - Blood pressure increased [Recovered/Resolved]

NARRATIVE: CASE EVENT DATE: 2019
